FAERS Safety Report 5137662-X (Version None)
Quarter: 2006Q4

REPORT INFORMATION
  Report Type: 
  Country: None (occurrence: None)
  Receive Date: 20061030
  Receipt Date: 20051212
  Transmission Date: 20070319
  Serious: No
  Sender: FDA-Public Use
  Company Number: US-GLAXOSMITHKLINE-A0585534A

PATIENT
  Age: 80 Year
  Sex: Male

DRUGS (8)
  1. ADVAIR HFA [Suspect]
     Indication: CHRONIC OBSTRUCTIVE PULMONARY DISEASE
     Dosage: 1PUFF PER DAY
     Route: 055
  2. ASPIRIN [Concomitant]
  3. TRICOR [Concomitant]
  4. LIPITOR [Concomitant]
  5. POTASSIUM ACETATE [Concomitant]
  6. LISINOPRIL [Concomitant]
  7. FUROSAMIDE [Concomitant]
  8. VEROLIN [Concomitant]

REACTIONS (2)
  - DRY MOUTH [None]
  - HEART RATE INCREASED [None]
